FAERS Safety Report 10306823 (Version 1)
Quarter: 2014Q3

REPORT INFORMATION
  Report Type: Spontaneous
  Country: US (occurrence: US)
  Receive Date: 20140715
  Receipt Date: 20140715
  Transmission Date: 20150326
  Serious: Yes (Death, Hospitalization)
  Sender: FDA-Public Use
  Company Number: US-CELGENEUS-163-21880-14071774

PATIENT
  Age: 78 Year
  Sex: Male

DRUGS (1)
  1. REVLIMID [Suspect]
     Active Substance: LENALIDOMIDE
     Indication: PLASMA CELL MYELOMA
     Dosage: 25 MILLIGRAM
     Route: 048
     Dates: start: 201207, end: 2013

REACTIONS (6)
  - Aspiration [Unknown]
  - Death [Fatal]
  - Gastrointestinal haemorrhage [Unknown]
  - Supraventricular tachycardia [Unknown]
  - Pneumonia [Unknown]
  - Respiratory distress [Unknown]

NARRATIVE: CASE EVENT DATE: 2013
